FAERS Safety Report 16355485 (Version 1)
Quarter: 2019Q2

REPORT INFORMATION
  Report Type: Spontaneous
  Country: CN (occurrence: CN)
  Receive Date: 20190525
  Receipt Date: 20190525
  Transmission Date: 20190711
  Serious: Yes (Other)
  Sender: FDA-Public Use
  Company Number: CN-ACCORD-129204

PATIENT
  Age: 77 Year
  Sex: Male
  Weight: 60 kg

DRUGS (12)
  1. AMBROXOL [Concomitant]
     Active Substance: AMBROXOL
     Dosage: D1-D28
  2. FOLIC ACID. [Concomitant]
     Active Substance: FOLIC ACID
     Dosage: D1-D18
  3. ISOSORBIDE. [Concomitant]
     Active Substance: ISOSORBIDE
     Dosage: D3-D20
  4. LEVOCARNITINE. [Concomitant]
     Active Substance: LEVOCARNITINE
     Dosage: D1-D26
  5. INSULIN [Concomitant]
     Active Substance: INSULIN NOS
     Dosage: D1-D28
  6. AMLODIPINE [Concomitant]
     Active Substance: AMLODIPINE BESYLATE
     Dosage: D1-D18
  7. CLOPIDOGREL [Concomitant]
     Active Substance: CLOPIDOGREL BISULFATE
     Dosage: D1-D28
  8. TRIMETAZIDINE [Concomitant]
     Active Substance: TRIMETAZIDINE
     Dosage: D3-D28
  9. TIGECYCLINE. [Suspect]
     Active Substance: TIGECYCLINE
     Indication: ACINETOBACTER INFECTION
     Dosage: ON DAY 16, A LOADING DOSE OF 100 MG FOLLOWED BY 50 MG EVERY 12 HOURS
     Route: 042
  10. ALPROSTADIL/ALPROSTADIL ALFADEX [Concomitant]
     Dosage: D1-D18
  11. IRON [Concomitant]
     Active Substance: IRON
     Dosage: D1-D18
  12. AMINOPHYLLINE. [Concomitant]
     Active Substance: AMINOPHYLLINE
     Dosage: D3-D26

REACTIONS (1)
  - Delirium [Recovered/Resolved]
